FAERS Safety Report 4505371-3 (Version None)
Quarter: 2004Q4

REPORT INFORMATION
  Report Type: 
  Country: None (occurrence: None)
  Receive Date: 20041015
  Receipt Date: 20040510
  Transmission Date: 20050328
  Serious: Yes (Other)
  Sender: FDA-Public Use
  Company Number: 2004018046

PATIENT
  Age: 63 Year
  Sex: Female
  Weight: 89.8122 kg

DRUGS (5)
  1. NEURONTIN [Suspect]
     Indication: BACK PAIN
     Dosage: 900 MG (300 MG, 3 IN 1 D) ORAL
     Route: 048
     Dates: start: 20030901
  2. PIOGLITAZONE HCL [Suspect]
     Indication: DIABETES MELLITUS
     Dates: end: 20031201
  3. OXYCET [Concomitant]
  4. DIGOXIN [Concomitant]
  5. METOPROLOL [Concomitant]

REACTIONS (5)
  - BLISTER [None]
  - FLUID RETENTION [None]
  - HIP SWELLING [None]
  - INFECTION [None]
  - MUSCULOSKELETAL STIFFNESS [None]
